FAERS Safety Report 5627530-9 (Version None)
Quarter: 2008Q1

REPORT INFORMATION
  Report Type: 
  Country: None (occurrence: None)
  Receive Date: 20080215
  Receipt Date: 20071115
  Transmission Date: 20080703
  Serious: No
  Sender: FDA-Public Use
  Company Number: A0694760A

PATIENT
  Sex: Male

DRUGS (11)
  1. COREG CR [Suspect]
     Indication: HYPERTENSION
     Dosage: 40MG PER DAY
     Route: 048
     Dates: start: 20070927, end: 20071113
  2. ALTACE [Concomitant]
  3. NORVASC [Concomitant]
  4. INSULIN [Concomitant]
  5. HYDROCHLOROTHIAZIDE [Concomitant]
  6. NITROGLYCERIN [Concomitant]
  7. NEXIUM [Concomitant]
  8. ASPIRIN [Concomitant]
  9. VYTORIN [Concomitant]
  10. METANX [Concomitant]
  11. UNKNOWN MEDICATION [Concomitant]

REACTIONS (2)
  - FATIGUE [None]
  - VENTRICULAR EXTRASYSTOLES [None]
